FAERS Safety Report 5094164-7 (Version None)
Quarter: 2006Q3

REPORT INFORMATION
  Report Type: 
  Country: None (occurrence: None)
  Receive Date: 20060831
  Receipt Date: 20060822
  Transmission Date: 20061208
  Serious: Yes (Other)
  Sender: FDA-Public Use
  Company Number: PHBS2006FI12587

PATIENT
  Age: 37 Year
  Sex: Female

DRUGS (1)
  1. VOLTAREN [Suspect]
     Indication: POSTOPERATIVE CARE
     Dates: end: 20060801

REACTIONS (3)
  - ASTHMA [None]
  - COUGH [None]
  - DYSPNOEA [None]
